FAERS Safety Report 4599735-X (Version None)
Quarter: 2005Q1

REPORT INFORMATION
  Report Type: 
  Country: None (occurrence: None)
  Receive Date: 20050303
  Receipt Date: 20050214
  Transmission Date: 20050727
  Serious: Yes (Other)
  Sender: FDA-Public Use
  Company Number: USA050188399

PATIENT
  Age: 46 Year
  Sex: Female
  Weight: 58 kg

DRUGS (3)
  1. CYMBALTA [Suspect]
     Indication: DEPRESSION
     Dosage: 30 MG/D
     Dates: start: 20050112, end: 20050112
  2. CYMBALTA [Suspect]
     Indication: MULTIPLE SCLEROSIS
     Dosage: 30 MG/D
     Dates: start: 20050112, end: 20050112
  3. AVONEX [Concomitant]

REACTIONS (11)
  - BODY TEMPERATURE DECREASED [None]
  - CHILLS [None]
  - CONFUSIONAL STATE [None]
  - DIARRHOEA [None]
  - DYSPRAXIA [None]
  - EYE DISORDER [None]
  - FEELING HOT [None]
  - NAUSEA [None]
  - PALPITATIONS [None]
  - SEROTONIN SYNDROME [None]
  - VOMITING [None]
